FAERS Safety Report 20805159 (Version 1)
Quarter: 2022Q2

REPORT INFORMATION
  Report Type: Spontaneous
  Country: None (occurrence: GB)
  Receive Date: 20220509
  Receipt Date: 20220509
  Transmission Date: 20220721
  Serious: Yes (Other)
  Sender: FDA-Public Use
  Company Number: GB-Ascend Therapeutics US, LLC-2128603

PATIENT
  Age: 56 Year
  Sex: Female
  Weight: 113 kg

DRUGS (8)
  1. ESTROGEL [Suspect]
     Active Substance: ESTRADIOL
     Indication: Urinary tract infection
     Route: 065
     Dates: start: 20220329, end: 20220404
  2. ESTROGEL [Suspect]
     Active Substance: ESTRADIOL
  3. ESTRADIOL [Suspect]
     Active Substance: ESTRADIOL
     Route: 065
     Dates: start: 20220329, end: 20220404
  4. ACRIVASTINE(ACRIVASTINE) [Concomitant]
     Route: 065
  5. LEVOTHYROXINE [Concomitant]
     Active Substance: LEVOTHYROXINE
     Route: 065
  6. NITROFURANTOIN(NITROFURANTOIN) [Concomitant]
     Route: 065
  7. CLAVULANATE POTASSIUM(CLAVULANATE POTASSIUM) [Concomitant]
     Route: 065
  8. AMOXICILLIN TRIHYDRATE(AMOXICILLIN TRIHYDRATE) [Concomitant]
     Route: 065

REACTIONS (4)
  - Dysmenorrhoea [Recovering/Resolving]
  - Palpitations [Recovering/Resolving]
  - Vaginal discharge [Recovered/Resolved]
  - Medication error [Unknown]

NARRATIVE: CASE EVENT DATE: 20220404
